FAERS Safety Report 4729969-2 (Version None)
Quarter: 2005Q3

REPORT INFORMATION
  Report Type: 
  Country: None (occurrence: None)
  Receive Date: 20050728
  Receipt Date: 20050715
  Transmission Date: 20060218
  Serious: Yes (Hospitalization)
  Sender: FDA-Public Use
  Company Number: 216141

PATIENT
  Age: 79 Year
  Sex: Female
  Weight: 63.5 kg

DRUGS (8)
  1. BEVACIZUMAB (BEVACIZUMAB) PWDR + SOLVENT, INFUSION SOLN, 100MG [Suspect]
     Indication: PERITONEAL CARCINOMA
     Dosage: 925 MG,Q3W, INTRAVENOUS
     Route: 042
     Dates: start: 20050511
  2. LORTAB [Concomitant]
  3. ATIVAN [Concomitant]
  4. AMITRIPTYLINE HCL [Concomitant]
  5. SUDAFED (PSEUDOEPHEDRINE HYDROCHLORIDE) [Concomitant]
  6. FIORICET 9CAFFEINE, BUTALBITAL, ACETAMINOPHEN) [Concomitant]
  7. PREVACID [Concomitant]
  8. BABY ASPIRN (ASPRIN) [Concomitant]

REACTIONS (31)
  - ALANINE AMINOTRANSFERASE INCREASED [None]
  - ASPARTATE AMINOTRANSFERASE INCREASED [None]
  - BODY TEMPERATURE INCREASED [None]
  - CEREBRAL ISCHAEMIA [None]
  - CHILLS [None]
  - CHOLELITHIASIS [None]
  - COGNITIVE DISORDER [None]
  - CONFUSIONAL STATE [None]
  - DISORIENTATION [None]
  - DIZZINESS [None]
  - DRUG SCREEN POSITIVE [None]
  - ELECTROCARDIOGRAM ST SEGMENT DEPRESSION [None]
  - FALL [None]
  - FATIGUE [None]
  - FIBRIN D DIMER INCREASED [None]
  - HEAD INJURY [None]
  - HEADACHE [None]
  - HYPOXIA [None]
  - INFECTION [None]
  - LETHARGY [None]
  - OVERDOSE [None]
  - PERFORMANCE STATUS DECREASED [None]
  - PLATELET COUNT DECREASED [None]
  - PULMONARY HYPERTENSION [None]
  - PULMONARY OEDEMA [None]
  - SINUS TACHYCARDIA [None]
  - SINUSITIS [None]
  - SOCIAL AVOIDANT BEHAVIOUR [None]
  - SOMNOLENCE [None]
  - SPEECH DISORDER [None]
  - VOMITING [None]
